FAERS Safety Report 8344722-9 (Version None)
Quarter: 2012Q2

REPORT INFORMATION
  Report Type: 
  Country: None (occurrence: None)
  Receive Date: 20120508
  Receipt Date: 20081208
  Transmission Date: 20120825
  Serious: Yes (Hospitalization)
  Sender: FDA-Public Use
  Company Number: US-BRISTOL-MYERS SQUIBB COMPANY-13567144

PATIENT
  Age: 83 Year
  Sex: Male

DRUGS (2)
  1. PLACEBO [Suspect]
     Indication: MALIGNANT MELANOMA
     Route: 048
     Dates: start: 20060905, end: 20061017
  2. IPILIMUMAB [Suspect]
     Indication: MALIGNANT MELANOMA
     Route: 042
     Dates: start: 20060905, end: 20061017

REACTIONS (2)
  - RECTAL HAEMORRHAGE [None]
  - COLITIS [None]
